FAERS Safety Report 9493832 (Version 1)
Quarter: 2013Q3

REPORT INFORMATION
  Report Type: Spontaneous
  Country: US (occurrence: US)
  Receive Date: 20130902
  Receipt Date: 20130902
  Transmission Date: 20140515
  Serious: Yes (Hospitalization)
  Sender: FDA-Public Use
  Company Number: US-B.I. PHARMACEUTICALS,INC./RIDGEFIELD-2013-BI-26392BP

PATIENT
  Age: 78 Year
  Sex: Male

DRUGS (17)
  1. COMBIVENT [Suspect]
     Dosage: 14.7 G
     Route: 055
  2. SUNITINIB MALATE [Suspect]
     Indication: PRODUCT USED FOR UNKNOWN INDICATION
     Dosage: 37.5 MG
     Route: 048
     Dates: start: 20121130, end: 20121210
  3. ABIRATERONE ACETATE [Suspect]
     Dosage: 1000 MG
     Route: 048
     Dates: start: 20120531, end: 20121210
  4. ADVIL [Suspect]
     Route: 048
  5. HYDROCHLOROTHIAZIDE [Suspect]
     Dosage: 25 MG
     Route: 048
  6. POTASSIUM CHLORIDE [Suspect]
     Dosage: 20 MG
     Route: 048
  7. ADVAIR DISKUS [Suspect]
     Dosage: 100/50 MG
     Route: 048
  8. ASPIRIN [Suspect]
     Dosage: 325 MG
     Route: 048
  9. DASATINIB [Suspect]
     Dosage: 100 MG
     Route: 048
     Dates: start: 20120920, end: 20121031
  10. NORCO [Suspect]
     Dosage: 5/325 MG ,4X /DAY
  11. COREG [Suspect]
     Dosage: 6.25 MG
     Route: 048
  12. ZOMETA [Suspect]
     Dosage: 12.4 MG
     Route: 042
  13. LUPRON [Suspect]
     Dosage: 22.5 MG
  14. CARAFATE [Suspect]
     Dosage: 10 ML
  15. XOPENEX [Suspect]
     Dosage: 2 DF
  16. HYDROMORPHONE [Suspect]
     Dosage: 2 MG
  17. AUGMENTIN [Suspect]
     Dosage: 875 MG
     Route: 048

REACTIONS (2)
  - Stomatitis [Recovered/Resolved]
  - Neutropenia [Recovered/Resolved]
